FAERS Safety Report 4660589-4 (Version None)
Quarter: 2005Q2

REPORT INFORMATION
  Report Type: 
  Country: None (occurrence: None)
  Receive Date: 20050512
  Receipt Date: 20050509
  Transmission Date: 20051028
  Serious: Yes (Death)
  Sender: FDA-Public Use
  Company Number: 2005CG00882

PATIENT
  Age: 60 Year
  Sex: Male

DRUGS (8)
  1. NEXIUM [Suspect]
     Route: 048
     Dates: start: 20041215, end: 20050130
  2. TARGOCID [Suspect]
     Indication: ENDOCARDITIS BACTERIAL
     Route: 042
     Dates: start: 20050113, end: 20050121
  3. CORDARONE [Suspect]
     Indication: ATRIAL FIBRILLATION
     Route: 048
     Dates: start: 20041223, end: 20050101
  4. CORDARONE [Suspect]
     Route: 048
     Dates: start: 20050101
  5. VANCOMYCIN [Suspect]
     Indication: ENDOCARDITIS BACTERIAL
     Route: 042
     Dates: start: 20050103, end: 20050113
  6. VANCOMYCIN [Suspect]
     Route: 042
     Dates: start: 20050131
  7. GENTAMICIN [Concomitant]
     Indication: ENDOCARDITIS BACTERIAL
     Route: 042
     Dates: start: 20041221, end: 20041225
  8. GENTAMICIN [Concomitant]
     Route: 042
     Dates: start: 20050103, end: 20050113

REACTIONS (10)
  - ATRIAL FIBRILLATION [None]
  - BONE MARROW DEPRESSION [None]
  - CARDIAC ARREST [None]
  - ENDOCARDITIS BACTERIAL [None]
  - ESCHERICHIA INFECTION [None]
  - HAEMODIALYSIS [None]
  - POST PROCEDURAL COMPLICATION [None]
  - RENAL IMPAIRMENT [None]
  - SEPTIC SHOCK [None]
  - THROMBOCYTOPENIA [None]
